FAERS Safety Report 19610242 (Version 1)
Quarter: 2021Q3

REPORT INFORMATION
  Report Type: Spontaneous
  Country: US (occurrence: US)
  Receive Date: 20210726
  Receipt Date: 20210726
  Transmission Date: 20211014
  Serious: Yes (Hospitalization)
  Sender: FDA-Public Use
  Company Number: US-MYLANLABS-2021M1044987

PATIENT
  Age: 30 Year
  Sex: Female
  Weight: 111 kg

DRUGS (1)
  1. XULANE [Suspect]
     Active Substance: ETHINYL ESTRADIOL\NORELGESTROMIN
     Indication: MENSTRUAL DISORDER
     Dosage: 150/35 MICROGRAM, QW, FOR 3 WEEKS
     Route: 062
     Dates: start: 20210101, end: 20210207

REACTIONS (7)
  - Pulmonary embolism [Unknown]
  - Feeling hot [Recovered/Resolved]
  - Thrombosis [Recovered/Resolved]
  - Loss of consciousness [Recovered/Resolved]
  - Embolism [Recovered/Resolved]
  - Hyperhidrosis [Recovered/Resolved]
  - Off label use [Recovered/Resolved]

NARRATIVE: CASE EVENT DATE: 20210101
